FAERS Safety Report 14328959 (Version 1)
Quarter: 2017Q4

REPORT INFORMATION
  Report Type: Spontaneous
  Country: US (occurrence: US)
  Receive Date: 20171227
  Receipt Date: 20171227
  Transmission Date: 20180321
  Serious: No
  Sender: FDA-Public Use
  Company Number: US-PFIZER INC-2017550260

PATIENT
  Sex: Female

DRUGS (2)
  1. EPICERAM [Suspect]
     Active Substance: DEVICE
     Dosage: UNK
  2. EUCRISA [Suspect]
     Active Substance: CRISABOROLE
     Dosage: UNK
     Dates: start: 201708

REACTIONS (2)
  - Application site pain [Unknown]
  - Application site pruritus [Unknown]
